FAERS Safety Report 5152308-2 (Version None)
Quarter: 2006Q4

REPORT INFORMATION
  Report Type: 
  Country: None (occurrence: None)
  Receive Date: 20061116
  Receipt Date: 20061103
  Transmission Date: 20070319
  Serious: Yes (Other)
  Sender: FDA-Public Use
  Company Number: CH-ROCHE-470043

PATIENT
  Age: 72 Year
  Sex: Female

DRUGS (3)
  1. BONIVA [Suspect]
     Indication: OSTEOPOROSIS
     Dosage: FORMULATION REPORTED AS FILM COATED TABLETS
     Route: 048
     Dates: start: 20060320, end: 20060320
  2. ASPIRIN [Suspect]
     Indication: DRUG USE FOR UNKNOWN INDICATION
     Route: 048
  3. NORVASC [Concomitant]
     Route: 048

REACTIONS (2)
  - DRUG INTERACTION [None]
  - HAEMATEMESIS [None]
